FAERS Safety Report 8034678-0 (Version None)
Quarter: 2012Q1

REPORT INFORMATION
  Report Type: 
  Country: None (occurrence: None)
  Receive Date: 20120111
  Receipt Date: 20120102
  Transmission Date: 20120608
  Serious: Yes (Other)
  Sender: FDA-Public Use
  Company Number: JP-BRISTOL-MYERS SQUIBB COMPANY-16230385

PATIENT
  Age: 82 Year
  Sex: Female
  Weight: 38 kg

DRUGS (14)
  1. TEGAFUR [Concomitant]
     Indication: RECTAL CANCER
     Dosage: UFT 300MG/BODY/DAY
     Route: 048
  2. FLUOROURACIL [Concomitant]
     Indication: RECTAL CANCER METASTATIC
     Dosage: 13 COURSES 400MG/M2 1 IN 14 D.  300MG/M2
     Dates: start: 20090713
  3. LEUCOVORIN CALCIUM [Concomitant]
     Indication: RECTAL CANCER METASTATIC
     Dates: start: 20090713
  4. FLUOROURACIL [Concomitant]
     Indication: METASTASES TO LYMPH NODES
     Dosage: 13 COURSES 400MG/M2 1 IN 14 D.  300MG/M2
     Dates: start: 20090713
  5. OXALIPLATIN [Concomitant]
     Indication: RECTAL CANCER METASTATIC
     Dosage: COURSE:13
  6. IRINOTECAN HCL [Concomitant]
     Indication: METASTASES TO LYMPH NODES
     Dosage: 120MG/M2
     Dates: start: 20090713
  7. ORGADRONE [Concomitant]
     Indication: PREMEDICATION
     Dates: start: 20090712
  8. KYTRIL [Concomitant]
     Indication: PROPHYLAXIS OF NAUSEA AND VOMITING
     Dates: start: 20090713
  9. OXALIPLATIN [Concomitant]
     Indication: METASTASES TO LYMPH NODES
     Dosage: COURSE:13
  10. CHLORPHENIRAMINE MALEATE [Concomitant]
     Indication: PREMEDICATION
     Dates: start: 20090713
  11. LEUCOVORIN CALCIUM [Concomitant]
     Indication: RECTAL CANCER
     Dates: start: 20090713
  12. ERBITUX [Suspect]
     Indication: RECTAL CANCER METASTATIC
     Dosage: 13-13,27JUL-21DEC09=250MG/M2,28DEC9-22MAR=200MG/M2,29MAR10=150MG/M2 12JAN11,RESTARTED WITH 150MG/M2
     Dates: start: 20090713
  13. BEVACIZUMAB [Concomitant]
     Indication: METASTASES TO LYMPH NODES
  14. LEUCOVORIN CALCIUM [Concomitant]
     Indication: METASTASES TO LYMPH NODES
     Dates: start: 20090713

REACTIONS (8)
  - BLOOD POTASSIUM DECREASED [None]
  - NEUTROPENIA [None]
  - BLOOD SODIUM DECREASED [None]
  - DRY SKIN [None]
  - LEUKOPENIA [None]
  - PARONYCHIA [None]
  - DERMATITIS ACNEIFORM [None]
  - SKIN ULCER [None]
